FAERS Safety Report 21817224 (Version 1)
Quarter: 2023Q1

REPORT INFORMATION
  Report Type: Spontaneous
  Country: US (occurrence: US)
  Receive Date: 20230104
  Receipt Date: 20230104
  Transmission Date: 20230417
  Serious: No
  Sender: FDA-Public Use
  Company Number: US-PFIZER INC-202300002617

PATIENT
  Age: 82 Year
  Sex: Female
  Weight: 79.38 kg

DRUGS (3)
  1. PAXLOVID [Suspect]
     Active Substance: NIRMATRELVIR\RITONAVIR
     Indication: COVID-19 treatment
     Dosage: 4 DF, DAILY (TWO IN THE MORNING TWO AT NIGHT); PF-07321332: 150MG/ RITONAVIR: 100MG
     Dates: start: 20221231
  2. GABAPENTIN [Concomitant]
     Active Substance: GABAPENTIN
     Dosage: 900 MG, DAILY (GABAPENTIN IS 300 MILLIGRAMS. I TAKE ONE IN THE MORNING AND 2 AT NIGHT)
  3. METOPROLOL [Concomitant]
     Active Substance: METOPROLOL
     Dosage: UNK

REACTIONS (4)
  - Myalgia [Unknown]
  - Abdominal pain [Unknown]
  - Taste disorder [Unknown]
  - Diarrhoea [Unknown]

NARRATIVE: CASE EVENT DATE: 20221231
